FAERS Safety Report 23487869 (Version 3)
Quarter: 2024Q1

REPORT INFORMATION
  Report Type: Spontaneous
  Country: US (occurrence: US)
  Receive Date: 20240206
  Receipt Date: 20240214
  Transmission Date: 20240409
  Serious: No
  Sender: FDA-Public Use
  Company Number: US-SANDOZ-SDZ2024US011821

PATIENT
  Age: 28 Year
  Sex: Male

DRUGS (5)
  1. AZITHROMYCIN [Suspect]
     Active Substance: AZITHROMYCIN
     Indication: Pulmonary cavitation
     Dosage: UNK
     Route: 065
     Dates: start: 202302
  2. AMIKACIN [Suspect]
     Active Substance: AMIKACIN
     Indication: Pulmonary cavitation
     Dosage: UNK
     Route: 042
     Dates: start: 202302
  3. AMIKACIN [Suspect]
     Active Substance: AMIKACIN
     Indication: Pulmonary cavitation
     Dosage: LIPOSOMAL AMIKACIN
     Route: 055
  4. ETHAMBUTOL [Suspect]
     Active Substance: ETHAMBUTOL HYDROCHLORIDE
     Indication: Pulmonary cavitation
     Dosage: UNK
     Route: 065
     Dates: start: 202302
  5. RIFAMPIN [Suspect]
     Active Substance: RIFAMPIN
     Indication: Pulmonary cavitation
     Dosage: UNK
     Route: 065
     Dates: start: 202302

REACTIONS (1)
  - Drug ineffective [Unknown]
